FAERS Safety Report 22652592 (Version 1)
Quarter: 2023Q2

REPORT INFORMATION
  Report Type: Spontaneous
  Country: US (occurrence: US)
  Receive Date: 20230629
  Receipt Date: 20230629
  Transmission Date: 20230722
  Serious: No
  Sender: FDA-Public Use
  Company Number: US-SA-SAC20230627000349

PATIENT
  Sex: Female

DRUGS (2)
  1. ARAVA [Suspect]
     Active Substance: LEFLUNOMIDE
     Indication: Rheumatoid arthritis
     Dosage: UNK
     Route: 065
  2. XELJANZ [Suspect]
     Active Substance: TOFACITINIB CITRATE
     Dosage: UNK
     Dates: start: 20230519

REACTIONS (9)
  - Dry eye [Unknown]
  - Arthralgia [Unknown]
  - Condition aggravated [Unknown]
  - Peripheral swelling [Recovering/Resolving]
  - Depressed mood [Unknown]
  - Mobility decreased [Unknown]
  - Food intolerance [Unknown]
  - Condition aggravated [Unknown]
  - Nausea [Recovering/Resolving]
